FAERS Safety Report 22361388 (Version 1)
Quarter: 2023Q2

REPORT INFORMATION
  Report Type: Spontaneous
  Country: US (occurrence: US)
  Receive Date: 20230524
  Receipt Date: 20230524
  Transmission Date: 20230722
  Serious: No
  Sender: FDA-Public Use
  Company Number: US-PFIZER INC-202300197677

PATIENT
  Age: 13 Year
  Sex: Female
  Weight: 63.492 kg

DRUGS (1)
  1. OXBRYTA [Suspect]
     Active Substance: VOXELOTOR
     Dosage: 1500 MG (300 MILLIGRAMS, FIVE TABLETS)

REACTIONS (1)
  - Pyrexia [Unknown]
